FAERS Safety Report 7225858-2 (Version None)
Quarter: 2011Q1

REPORT INFORMATION
  Report Type: 
  Country: None (occurrence: None)
  Receive Date: 20110113
  Receipt Date: 20110111
  Transmission Date: 20110831
  Serious: Yes (Death)
  Sender: FDA-Public Use
  Company Number: VE-PFIZER INC-2011006906

PATIENT
  Age: 59 Year
  Sex: Male

DRUGS (6)
  1. ZOLOFT [Suspect]
     Indication: DEPRESSION
     Dosage: 50 MG, 1X/DAY
     Route: 048
     Dates: start: 20050101, end: 20100701
  2. PLAVIX [Concomitant]
     Dosage: 75 MG, 1X/DAY
     Route: 048
     Dates: end: 20101102
  3. LOSARTAN [Concomitant]
     Indication: HYPERTENSION
     Dosage: 50 MG, 1X/DAY
     Route: 048
     Dates: start: 20100801, end: 20101102
  4. BI-EUGLUCON [Concomitant]
     Indication: DIABETES MELLITUS
     Dosage: 500 MG, 1X/DAY
     Route: 048
     Dates: start: 20050101, end: 20101102
  5. NEURONTIN [Concomitant]
     Dosage: 600 MG, 2X/DAY
     Route: 048
     Dates: end: 20101102
  6. DAFLON [Concomitant]
     Dosage: 500 MG, 1X/DAY
     Route: 048
     Dates: end: 20101102

REACTIONS (1)
  - DEATH [None]
